FAERS Safety Report 8304570-2 (Version None)
Quarter: 2012Q2

REPORT INFORMATION
  Report Type: 
  Country: None (occurrence: None)
  Receive Date: 20120423
  Receipt Date: 20120406
  Transmission Date: 20120825
  Serious: Yes (Other)
  Sender: FDA-Public Use
  Company Number: JP-GLAXOSMITHKLINE-B0794281A

PATIENT
  Sex: Male

DRUGS (5)
  1. LAMICTAL [Suspect]
     Dosage: 50MG PER DAY
     Route: 048
     Dates: start: 20120322, end: 20120402
  2. LODOPIN [Concomitant]
     Dosage: 100MG PER DAY
     Route: 048
     Dates: start: 20120203
  3. ALDACTONE [Concomitant]
     Dosage: 25MG PER DAY
     Route: 048
  4. ALLOPURINOL [Concomitant]
     Dosage: 100MG PER DAY
     Route: 048
  5. LAMICTAL [Suspect]
     Indication: BIPOLAR DISORDER
     Dosage: 25MG PER DAY
     Route: 048
     Dates: start: 20120308, end: 20120321

REACTIONS (9)
  - WHITE BLOOD CELL COUNT DECREASED [None]
  - HAEMOGLOBIN DECREASED [None]
  - FATIGUE [None]
  - FALL [None]
  - ANAEMIA [None]
  - DYSPNOEA [None]
  - NEUTROPHIL PERCENTAGE DECREASED [None]
  - BRADYKINESIA [None]
  - DIZZINESS [None]
